FAERS Safety Report 6811424-7 (Version None)
Quarter: 2010Q2

REPORT INFORMATION
  Report Type: 
  Country: None (occurrence: None)
  Receive Date: 20100630
  Receipt Date: 20100422
  Transmission Date: 20101027
  Serious: No
  Sender: FDA-Public Use
  Company Number: US-AMGEN-KDL408534

PATIENT
  Age: 84 Year
  Sex: Male
  Weight: 74 kg

DRUGS (7)
  1. PROCRIT [Suspect]
     Indication: RENAL FAILURE CHRONIC
  2. PROCARDIA XL [Concomitant]
  3. TOPOLOL [Concomitant]
  4. MONOCORDIL [Concomitant]
  5. LASIX [Concomitant]
  6. POTASSIUM [Concomitant]
  7. ARICEPT [Concomitant]

REACTIONS (3)
  - INCORRECT ROUTE OF DRUG ADMINISTRATION [None]
  - SKIN ATROPHY [None]
  - SKIN LACERATION [None]
